APPROVED DRUG PRODUCT: ASPIRIN AND DIPYRIDAMOLE
Active Ingredient: ASPIRIN; DIPYRIDAMOLE
Strength: 25MG;200MG
Dosage Form/Route: CAPSULE, EXTENDED RELEASE;ORAL
Application: A209048 | Product #001 | TE Code: AB
Applicant: DR REDDYS LABORATORIES LTD
Approved: Oct 10, 2018 | RLD: No | RS: No | Type: RX